FAERS Safety Report 9028900 (Version 3)
Quarter: 2013Q2

REPORT INFORMATION
  Report Type: Spontaneous
  Country: US (occurrence: US)
  Receive Date: 20130124
  Receipt Date: 20130416
  Transmission Date: 20140414
  Serious: Yes (Hospitalization, Other)
  Sender: FDA-Public Use
  Company Number: US-PFIZER INC-2013024065

PATIENT
  Age: 17 Year
  Sex: Female

DRUGS (7)
  1. AZITHROMYCIN [Suspect]
     Indication: PNEUMONIA
     Dosage: 500 MG, (TWO 250 MG TABLETS)
     Route: 048
     Dates: start: 20121107
  2. AZITHROMYCIN [Suspect]
     Dosage: 250 MG, (ONE TABLET)
     Route: 048
     Dates: start: 20121108, end: 20121111
  3. ZITHROMAX [Suspect]
     Indication: PNEUMONIA
     Dosage: UNK
     Route: 048
     Dates: start: 20121107
  4. ZITHROMAX [Suspect]
     Indication: COUGH
  5. PREDNISONE [Concomitant]
     Dosage: 40 MG, (TWO 20MG TABLETS)
     Route: 048
     Dates: start: 20121107
  6. ALBUTEROL [Concomitant]
     Indication: COUGH
     Dosage: 0.083 %,
     Dates: start: 20121107
  7. IBUPROFEN [Concomitant]
     Indication: PAIN
     Dosage: 600 MG
     Route: 048
     Dates: start: 20121107

REACTIONS (4)
  - Stevens-Johnson syndrome [Not Recovered/Not Resolved]
  - Toxic epidermal necrolysis [Not Recovered/Not Resolved]
  - Drug reaction with eosinophilia and systemic symptoms [Not Recovered/Not Resolved]
  - Acute generalised exanthematous pustulosis [Not Recovered/Not Resolved]
